FAERS Safety Report 4995264-X (Version None)
Quarter: 2006Q2

REPORT INFORMATION
  Report Type: 
  Country: None (occurrence: None)
  Receive Date: 20060508
  Receipt Date: 20051122
  Transmission Date: 20061013
  Serious: Yes (Other)
  Sender: FDA-Public Use
  Company Number: US-MERCK-0511USA03836

PATIENT
  Age: 53 Year
  Sex: Female
  Weight: 99 kg

DRUGS (2)
  1. VIOXX [Suspect]
     Indication: ARTHRITIS
     Route: 048
     Dates: start: 20030203
  2. ASPIRIN [Concomitant]
     Route: 065

REACTIONS (5)
  - FACIAL PALSY [None]
  - MUSCLE SPASMS [None]
  - MYOCARDIAL INFARCTION [None]
  - OVERDOSE [None]
  - PRESCRIBED OVERDOSE [None]
